FAERS Safety Report 9419039 (Version 1)
Quarter: 2013Q3

REPORT INFORMATION
  Report Type: Report from Study
  Country: CA (occurrence: CA)
  Receive Date: 20130725
  Receipt Date: 20130725
  Transmission Date: 20140515
  Serious: Yes (Other)
  Sender: FDA-Public Use
  Company Number: PHHY2013CA043007

PATIENT
  Age: 76 Year
  Sex: Female
  Weight: 49 kg

DRUGS (7)
  1. ACLASTA/ZOLEDRONATE [Suspect]
     Indication: OSTEOPOROSIS
     Dosage: UNK UKN, UNK
     Route: 042
     Dates: start: 20090526
  2. ACLASTA/ZOLEDRONATE [Suspect]
     Dosage: UNK UKN, UNK
     Route: 042
     Dates: start: 20100521
  3. ACLASTA/ZOLEDRONATE [Suspect]
     Dosage: UNK UKN, UNK
     Route: 042
     Dates: start: 20110523
  4. ACLASTA/ZOLEDRONATE [Suspect]
     Dosage: UNK UKN, UNK
     Route: 042
     Dates: start: 20120523
  5. ACLASTA/ZOLEDRONATE [Suspect]
     Dosage: UNK UKN, UNK
     Route: 042
     Dates: start: 20130613
  6. VITAMIN D [Concomitant]
     Dosage: 400 IU, DAY
     Dates: start: 1999
  7. CALCIUM [Concomitant]
     Dosage: 500 MG, TID
     Dates: start: 1999

REACTIONS (2)
  - Pubis fracture [Unknown]
  - Pain [Unknown]
